FAERS Safety Report 5162166-8 (Version None)
Quarter: 2006Q4

REPORT INFORMATION
  Report Type: 
  Country: None (occurrence: None)
  Receive Date: 20061121
  Receipt Date: 20061110
  Transmission Date: 20070319
  Serious: Yes (Other)
  Sender: FDA-Public Use
  Company Number: ACO_0286_2006

PATIENT
  Sex: Female
  Weight: 62 kg

DRUGS (3)
  1. SIRDALUD [Suspect]
     Indication: BONE PAIN
     Dosage: 2 MG Q12HR PO
     Route: 048
     Dates: start: 20061027, end: 20061027
  2. SIRDALUD [Suspect]
     Indication: BONE PAIN
     Dosage: 2 MG QDAY PO
     Route: 048
     Dates: start: 20061028
  3. OMEPRAZOLE [Concomitant]

REACTIONS (11)
  - ARTHRALGIA [None]
  - ASTHENIA [None]
  - BACK PAIN [None]
  - DIZZINESS [None]
  - FEELING COLD [None]
  - HALLUCINATION [None]
  - HIATUS HERNIA [None]
  - HOUSE DUST ALLERGY [None]
  - MYCOTIC ALLERGY [None]
  - PAIN IN EXTREMITY [None]
  - SOMNOLENCE [None]
